FAERS Safety Report 8741907 (Version 3)
Quarter: 2012Q4

REPORT INFORMATION
  Report Type: 
  Country: US (occurrence: US)
  Receive Date: 20120824
  Receipt Date: 20120928
  Transmission Date: 20130627
  Serious: No
  Sender: FDA-Public Use
  Company Number: US-PFIZER INC-2012204637

PATIENT
  Sex: Female

DRUGS (1)
  1. VISTARIL [Suspect]
     Indication: ANXIETY
     Dosage: 50 mg, UNK

REACTIONS (3)
  - Drug prescribing error [Unknown]
  - Speech disorder [Unknown]
  - Hypersensitivity [Unknown]
